FAERS Safety Report 5593212-5 (Version None)
Quarter: 2008Q1

REPORT INFORMATION
  Report Type: 
  Country: None (occurrence: None)
  Receive Date: 20080116
  Receipt Date: 20080107
  Transmission Date: 20080703
  Serious: Yes (Hospitalization)
  Sender: FDA-Public Use
  Company Number: US-AMGEN-US241960

PATIENT
  Sex: Female

DRUGS (9)
  1. ENBREL [Suspect]
     Indication: RHEUMATOID ARTHRITIS
     Route: 042
     Dates: start: 20020520
  2. ENBREL [Suspect]
     Route: 065
  3. FOLIC ACID [Concomitant]
     Route: 065
  4. ZYRTEC [Concomitant]
     Route: 065
  5. AMBIEN [Concomitant]
     Route: 065
  6. HYZAAR [Concomitant]
     Route: 065
  7. LIPITOR [Concomitant]
     Route: 065
  8. CENTRUM SILVER [Concomitant]
     Route: 065
  9. LAMISIL [Concomitant]
     Route: 065

REACTIONS (1)
  - ATRIAL FIBRILLATION [None]
